FAERS Safety Report 7937915-3 (Version None)
Quarter: 2011Q4

REPORT INFORMATION
  Report Type: 
  Country: None (occurrence: None)
  Receive Date: 20111123
  Receipt Date: 20111114
  Transmission Date: 20120403
  Serious: Yes (Hospitalization, Other)
  Sender: FDA-Public Use
  Company Number: US-BAYER-2011-032283

PATIENT
  Age: 20 Year
  Sex: Female
  Weight: 61.224 kg

DRUGS (1)
  1. YAZ [Suspect]
     Indication: ORAL CONTRACEPTION
     Dosage: UNK
     Dates: start: 20090101, end: 20100101

REACTIONS (9)
  - CHOLELITHIASIS [None]
  - LYMPHADENOPATHY [None]
  - CHOLECYSTITIS [None]
  - OESOPHAGITIS [None]
  - GASTRITIS [None]
  - ABDOMINAL PAIN [None]
  - ABDOMINAL DISTENSION [None]
  - LYMPHADENITIS [None]
  - INJURY [None]
